FAERS Safety Report 6137402-1 (Version None)
Quarter: 2009Q1

REPORT INFORMATION
  Report Type: 
  Country: None (occurrence: None)
  Receive Date: 20090326
  Receipt Date: 20090316
  Transmission Date: 20090719
  Serious: Yes (Death)
  Sender: FDA-Public Use
  Company Number: OSCN-PR-0903S-0153

PATIENT
  Sex: Female

DRUGS (2)
  1. OMNISCAN [Suspect]
     Indication: DRUG USE FOR UNKNOWN INDICATION
     Dosage: SINGLE DOSE
     Dates: start: 20050721, end: 20050721
  2. OMNISCAN [Suspect]
     Indication: DRUG USE FOR UNKNOWN INDICATION
     Dosage: SINGLE DOSE
     Dates: start: 20071114, end: 20071114

REACTIONS (2)
  - DISEASE COMPLICATION [None]
  - NEPHROGENIC SYSTEMIC FIBROSIS [None]
